FAERS Safety Report 8048220-1 (Version None)
Quarter: 2011Q4

REPORT INFORMATION
  Report Type: 
  Country: None (occurrence: None)
  Receive Date: 20111209
  Receipt Date: 20111025
  Transmission Date: 20120403
  Serious: No
  Sender: FDA-Public Use
  Company Number: 2011SP050512

PATIENT
  Age: 68 Year
  Sex: Female

DRUGS (6)
  1. XANAX [Concomitant]
  2. VITAMIN D [Concomitant]
  3. ESTRADEM [Concomitant]
  4. CALCIUM WITH VITAMIN D /00944201/ [Concomitant]
  5. VICTRELIS [Suspect]
     Indication: PRODUCT USED FOR UNKNOWN INDICATION
     Dosage: 200 MG;Q8H; PO
     Route: 048
     Dates: start: 20110801
  6. METFORMIN HCL [Concomitant]

REACTIONS (4)
  - WHITE BLOOD CELL COUNT DECREASED [None]
  - VISION BLURRED [None]
  - CATARACT [None]
  - RASH GENERALISED [None]
